FAERS Safety Report 7380951-9 (Version None)
Quarter: 2011Q1

REPORT INFORMATION
  Report Type: 
  Country: None (occurrence: None)
  Receive Date: 20110329
  Receipt Date: 20110322
  Transmission Date: 20110831
  Serious: Yes (Other)
  Sender: FDA-Public Use
  Company Number: PHHY2010JP83992

PATIENT
  Age: 77 Year
  Sex: Female

DRUGS (6)
  1. REQUIP [Suspect]
     Dosage: 6 MG
  2. SELEGILINE HYDROCHLORIDE [Concomitant]
     Indication: PARKINSON'S DISEASE
     Dosage: 7.5 MG, QD
  3. LEVODOPA [Concomitant]
     Indication: PARKINSON'S DISEASE
     Dosage: 350 MG, QD
  4. COMTAN [Suspect]
     Indication: PARKINSON'S DISEASE
     Dosage: 300 MG, QD
  5. PRAMIPEXOLE DIHYDROCHLORIDE [Suspect]
     Indication: PARKINSON'S DISEASE
     Dosage: 1.5 MG, QD
  6. REQUIP [Suspect]
     Indication: PARKINSON'S DISEASE
     Dosage: 2 MG, QD

REACTIONS (4)
  - CONDITION AGGRAVATED [None]
  - SUDDEN ONSET OF SLEEP [None]
  - DYSKINESIA [None]
  - HALLUCINATION, VISUAL [None]
